FAERS Safety Report 14886013 (Version 1)
Quarter: 2018Q2

REPORT INFORMATION
  Report Type: Spontaneous
  Country: FR (occurrence: FR)
  Receive Date: 20180512
  Receipt Date: 20180512
  Transmission Date: 20180711
  Serious: Yes (Life-Threatening, Hospitalization, Other)
  Sender: FDA-Public Use
  Company Number: FR-CONCORDIA PHARMACEUTICALS INC.-E2B_00011648

PATIENT
  Age: 52 Year
  Sex: Male
  Weight: 105 kg

DRUGS (4)
  1. CLOBETASOL PROPIONATE (AMALLC) [Suspect]
     Active Substance: CLOBETASOL PROPIONATE
     Indication: PEMPHIGOID
     Dosage: 30 G, UNK
     Route: 061
  2. MYCOPHENOLATE MOFETIL (UNKNOWN) [Suspect]
     Active Substance: MYCOPHENOLATE MOFETIL
     Indication: PEMPHIGOID
     Dosage: 2 GRAM DAILY; 1 G, BID
     Route: 065
  3. PREDNISOLONE. [Suspect]
     Active Substance: PREDNISOLONE
     Indication: PEMPHIGOID
     Dosage: 100 MILLIGRAM DAILY; 100 MG, DAILY
     Route: 065
  4. PREDNISOLONE. [Suspect]
     Active Substance: PREDNISOLONE
     Dosage: 60 MILLIGRAM DAILY; 60 MG, DAILY

REACTIONS (3)
  - Streptococcal infection [Recovering/Resolving]
  - Staphylococcal infection [Recovering/Resolving]
  - Necrotising fasciitis [Recovering/Resolving]
